FAERS Safety Report 8179692-X (Version None)
Quarter: 2012Q1

REPORT INFORMATION
  Report Type: 
  Country: None (occurrence: None)
  Receive Date: 20120302
  Receipt Date: 20120227
  Transmission Date: 20120608
  Serious: Yes (Other)
  Sender: FDA-Public Use
  Company Number: BE-JNJFOC-20120214634

PATIENT
  Sex: Female

DRUGS (1)
  1. LISTERINE [Suspect]
     Indication: PRODUCT USED FOR UNKNOWN INDICATION
     Route: 048

REACTIONS (4)
  - TREMOR [None]
  - SWELLING FACE [None]
  - ANGIOEDEMA [None]
  - RASH [None]
